FAERS Safety Report 4405906-5 (Version None)
Quarter: 2004Q3

REPORT INFORMATION
  Report Type: 
  Country: None (occurrence: None)
  Receive Date: 20040723
  Receipt Date: 20040126
  Transmission Date: 20050211
  Serious: Yes (Hospitalization)
  Sender: FDA-Public Use
  Company Number: US-GLAXOSMITHKLINE-A0496503A

PATIENT
  Age: 71 Year
  Sex: Male

DRUGS (8)
  1. AVANDIA [Suspect]
     Route: 048
     Dates: start: 19990930, end: 20010701
  2. INSULIN [Suspect]
     Dates: start: 19991231
  3. GLUCOPHAGE [Concomitant]
     Dosage: 500MG PER DAY
     Dates: end: 20010701
  4. TRIAMTERENE AND HYDROCHLOROTHIAZIDE [Concomitant]
  5. DIGOXIN [Concomitant]
     Dosage: .25MG PER DAY
     Dates: start: 19980101, end: 20010701
  6. VASOTEC [Concomitant]
     Dosage: 10MG PER DAY
  7. KCL TAB [Concomitant]
     Dosage: 20MEQ PER DAY
  8. CELEBREX [Concomitant]
     Dates: end: 20020701

REACTIONS (1)
  - CARDIAC FAILURE CONGESTIVE [None]
